FAERS Safety Report 16046001 (Version 2)
Quarter: 2019Q3

REPORT INFORMATION
  Report Type: Spontaneous
  Country: US (occurrence: US)
  Receive Date: 20190307
  Receipt Date: 20190704
  Transmission Date: 20191004
  Serious: No
  Sender: FDA-Public Use
  Company Number: US-BIOGEN-2019BI00705160

PATIENT
  Age: 40 Year
  Sex: Female
  Weight: 103.51 kg

DRUGS (1)
  1. TYSABRI [Suspect]
     Active Substance: NATALIZUMAB
     Indication: MULTIPLE SCLEROSIS
     Route: 042
     Dates: start: 20101202

REACTIONS (9)
  - Gait disturbance [Unknown]
  - Arthropathy [Unknown]
  - Peroneal nerve palsy [Unknown]
  - Ligament rupture [Unknown]
  - Anxiety [Unknown]
  - Mental impairment [Unknown]
  - Product dose omission [Unknown]
  - Muscle spasms [Unknown]
  - Back disorder [Unknown]

NARRATIVE: CASE EVENT DATE: 20190101
